FAERS Safety Report 12893821 (Version 1)
Quarter: 2016Q4

REPORT INFORMATION
  Report Type: Spontaneous
  Country: JP (occurrence: JP)
  Receive Date: 20161028
  Receipt Date: 20161028
  Transmission Date: 20170207
  Serious: Yes (Other)
  Sender: FDA-Public Use
  Company Number: JP-GILEAD-2016-0239504

PATIENT
  Age: 59 Year
  Sex: Female
  Weight: 60 kg

DRUGS (6)
  1. HARVONI [Suspect]
     Active Substance: LEDIPASVIR\SOFOSBUVIR
     Indication: CHRONIC HEPATITIS C
     Dosage: UNK
     Route: 048
     Dates: start: 20160714, end: 20161005
  2. PREDONINE [Concomitant]
     Active Substance: PREDNISOLONE\PREDNISOLONE ACETATE\PREDNISOLONE SODIUM SUCCINATE
     Dosage: UNK
     Route: 048
     Dates: start: 20160831
  3. ONEALFA [Concomitant]
     Active Substance: ALFACALCIDOL
     Dosage: UNK
     Dates: start: 20160831
  4. URSO [Suspect]
     Active Substance: URSODIOL
     Indication: CHRONIC HEPATITIS C
     Dosage: UNK MG, UNK
     Route: 048
  5. BEHYD RA [Suspect]
     Active Substance: BENZYLHYDROCHLOROTHIAZIDE\RESERPINE
     Indication: HYPERTENSION
     Dosage: UNK
     Route: 048
  6. ZANTAC [Concomitant]
     Active Substance: RANITIDINE HYDROCHLORIDE
     Dosage: UNK
     Dates: start: 20160831

REACTIONS (1)
  - Prinzmetal angina [Recovered/Resolved]

NARRATIVE: CASE EVENT DATE: 20160928
